FAERS Safety Report 18755352 (Version 1)
Quarter: 2021Q1

REPORT INFORMATION
  Report Type: Spontaneous
  Country: US (occurrence: US)
  Receive Date: 20210119
  Receipt Date: 20210119
  Transmission Date: 20210419
  Serious: Yes (Hospitalization)
  Sender: FDA-Public Use
  Company Number: US-CADILA HEALTHCARE LIMITED-US-ZYDUS-060831

PATIENT

DRUGS (3)
  1. VALPROATE [Suspect]
     Active Substance: VALPROIC ACID
     Indication: PRODUCT USED FOR UNKNOWN INDICATION
     Dosage: UNK (5 PILLS)
     Route: 065
  2. ASPIRIN [ACETYLSALICYLIC ACID] [Suspect]
     Active Substance: ASPIRIN
     Indication: PRODUCT USED FOR UNKNOWN INDICATION
     Dosage: UNK (30 PILLS, APPROX. 2500 MG)
     Route: 065
  3. AMLODIPINE [Suspect]
     Active Substance: AMLODIPINE BESYLATE
     Indication: PRODUCT USED FOR UNKNOWN INDICATION
     Dosage: 75 MILLIGRAM (15 PILLS)
     Route: 065

REACTIONS (6)
  - Hypoxia [Unknown]
  - Overdose [Unknown]
  - Distributive shock [Unknown]
  - Acute kidney injury [Unknown]
  - Acidosis [Unknown]
  - Hypotension [Recovered/Resolved]
